FAERS Safety Report 8592198-9 (Version None)
Quarter: 2012Q3

REPORT INFORMATION
  Report Type: 
  Country: None (occurrence: None)
  Receive Date: 20120814
  Receipt Date: 20120803
  Transmission Date: 20120928
  Serious: Yes (Death, Hospitalization)
  Sender: FDA-Public Use
  Company Number: AU-CELGENEUS-008-20785-12053141

PATIENT
  Sex: Male

DRUGS (22)
  1. PERINDOPRIL ERBUMINE [Concomitant]
     Dosage: 2.5 MILLIGRAM
     Route: 065
     Dates: start: 20110101, end: 20120615
  2. COLOXYL WITH SENNA [Concomitant]
     Indication: CONSTIPATION
     Route: 065
  3. LAMIVUDINE [Concomitant]
     Dosage: 100 MILLIGRAM
     Route: 065
     Dates: start: 20120301, end: 20120615
  4. AMIODARONE HCL [Concomitant]
     Dosage: 100 MILLIGRAM
     Route: 065
     Dates: start: 20110101, end: 20120615
  5. MAGMIN [Concomitant]
     Route: 065
     Dates: end: 20120615
  6. MORPHINE [Concomitant]
     Indication: PAIN
     Route: 065
     Dates: start: 20120619, end: 20120626
  7. CYCLOPHOSPHAMIDE [Suspect]
     Indication: MULTIPLE MYELOMA
     Dosage: 3.5714 MILLIGRAM
     Route: 065
     Dates: start: 20120518, end: 20120530
  8. BISOPROLOL [Concomitant]
     Dosage: 225 MILLIGRAM
     Route: 065
     Dates: start: 20110101, end: 20120615
  9. LACTULOSE [Concomitant]
     Indication: CONSTIPATION
     Route: 065
     Dates: start: 20120615
  10. VENTOLIN [Concomitant]
     Route: 065
     Dates: start: 20120604
  11. FLUTICASONE PROPIONATE/SALMETEROL [Concomitant]
     Route: 065
  12. MIDAZOLAM [Concomitant]
     Indication: PAIN
     Route: 065
     Dates: start: 20120619, end: 20120626
  13. THALOMID [Suspect]
     Indication: MULTIPLE MYELOMA
     Dosage: 50 MILLIGRAM
     Route: 048
     Dates: start: 20120518, end: 20120530
  14. DEXAMETHASONE [Suspect]
     Indication: MULTIPLE MYELOMA
     Dosage: 1.4286 MILLIGRAM
     Route: 065
     Dates: start: 20120518, end: 20120530
  15. ENOXAPARIN SODIUM [Concomitant]
     Dosage: 40 MILLIGRAM
     Route: 065
     Dates: start: 20120604
  16. SPIRIVA [Concomitant]
     Route: 065
  17. ALLOPURINOL [Concomitant]
     Indication: DELIRIUM
     Dosage: .5 MILLIGRAM
     Route: 065
     Dates: start: 20120626
  18. FENTANYL [Concomitant]
     Indication: PAIN
     Dosage: 25 MICROGRAM
     Route: 065
     Dates: end: 20120619
  19. PREDNISOLONE [Suspect]
     Route: 065
     Dates: start: 20120514, end: 20120613
  20. ASPIRIN [Concomitant]
     Dosage: 100 MILLIGRAM
     Route: 065
     Dates: start: 20110101, end: 20120621
  21. MOVIPREP [Concomitant]
     Indication: CONSTIPATION
     Route: 065
  22. ACETAMINOPHEN [Concomitant]
     Indication: CONSTIPATION
     Dosage: 1 GRAM
     Route: 065
     Dates: start: 20120604, end: 20120626

REACTIONS (4)
  - NERVOUS SYSTEM DISORDER [None]
  - DELIRIUM [None]
  - PNEUMONIA [None]
  - FALL [None]
